FAERS Safety Report 5162381-3 (Version None)
Quarter: 2006Q4

REPORT INFORMATION
  Report Type: 
  Country: None (occurrence: None)
  Receive Date: 20061127
  Receipt Date: 20061127
  Transmission Date: 20070319
  Serious: Yes (Hospitalization)
  Sender: FDA-Public Use
  Company Number: None

PATIENT
  Age: 86 Year
  Sex: Male

DRUGS (7)
  1. STALEVO 100 [Suspect]
     Indication: PARKINSON'S DISEASE
     Dosage: 50 MG TID PO
     Route: 048
  2. ASPIRIN [Concomitant]
  3. NEURONTIN [Concomitant]
  4. PAXIL [Concomitant]
  5. LASIX [Concomitant]
  6. ELAVIL [Concomitant]
  7. COREG [Concomitant]

REACTIONS (3)
  - ABDOMINAL DISCOMFORT [None]
  - NAUSEA [None]
  - VOMITING [None]
